FAERS Safety Report 8312893-6 (Version None)
Quarter: 2012Q2

REPORT INFORMATION
  Report Type: 
  Country: None (occurrence: None)
  Receive Date: 20120426
  Receipt Date: 20120419
  Transmission Date: 20120825
  Serious: Yes (Hospitalization)
  Sender: FDA-Public Use
  Company Number: US-BAYER-201038539NA

PATIENT
  Age: 34 Year
  Sex: Female
  Weight: 91 kg

DRUGS (6)
  1. YASMIN [Suspect]
     Indication: OVARIAN CYST
     Dates: start: 20070701, end: 20080101
  2. IBUPROFEN [Concomitant]
     Indication: PLEURISY
     Dosage: UNK
  3. MAXAIR [Concomitant]
     Indication: ASTHMA
     Dosage: UNK UNK, PRN
     Route: 045
  4. YASMIN [Suspect]
     Indication: ENDOMETRIOSIS
  5. PRILOSEC [Concomitant]
  6. PROZAC [Concomitant]
     Indication: DEPRESSION
     Dosage: 40 MG, QD

REACTIONS (2)
  - PULMONARY EMBOLISM [None]
  - DEEP VEIN THROMBOSIS [None]
